FAERS Safety Report 4876611-6 (Version None)
Quarter: 2006Q1

REPORT INFORMATION
  Report Type: 
  Country: None (occurrence: None)
  Receive Date: 20060110
  Receipt Date: 20050112
  Transmission Date: 20060701
  Serious: Yes (Death, Hospitalization)
  Sender: FDA-Public Use
  Company Number: US-MERCK-0501USA01884

PATIENT
  Age: 79 Year
  Sex: Female
  Weight: 95 kg

DRUGS (1)
  1. VIOXX [Suspect]
     Indication: ARTHRALGIA
     Route: 048
     Dates: start: 19990101, end: 20040216

REACTIONS (4)
  - CARDIAC FAILURE CONGESTIVE [None]
  - DYSPHAGIA [None]
  - OVERDOSE [None]
  - ROAD TRAFFIC ACCIDENT [None]
